FAERS Safety Report 10445848 (Version 1)
Quarter: 2014Q3

REPORT INFORMATION
  Report Type: Spontaneous
  Country: VE (occurrence: VE)
  Receive Date: 20140910
  Receipt Date: 20140910
  Transmission Date: 20150326
  Serious: Yes (Life-Threatening, Other)
  Sender: FDA-Public Use
  Company Number: PHHY2014VE116659

PATIENT
  Age: 15 Year
  Sex: Male

DRUGS (2)
  1. TRILEPTAL [Suspect]
     Active Substance: OXCARBAZEPINE
     Indication: CONVULSION
     Dosage: 27 CM3, DAILY
     Route: 048
  2. LAMOTRIGIL [Concomitant]
     Indication: CONVULSION
     Dosage: 250 MG, DAILY
     Dates: start: 2013

REACTIONS (8)
  - Fear [Unknown]
  - Fall [Recovering/Resolving]
  - Dyspnoea [Recovering/Resolving]
  - Hand deformity [Recovering/Resolving]
  - Convulsion [Recovering/Resolving]
  - Terminal state [Recovering/Resolving]
  - Peripheral swelling [Recovering/Resolving]
  - Nervous system disorder [Unknown]

NARRATIVE: CASE EVENT DATE: 201402
